FAERS Safety Report 10896737 (Version 1)
Quarter: 2015Q1

REPORT INFORMATION
  Report Type: Spontaneous
  Country: US (occurrence: None)
  Receive Date: 20150302
  Receipt Date: 20150302
  Transmission Date: 20150721
  Serious: Yes (Disabling)
  Sender: FDA-Public Use
  Company Number: None

PATIENT
  Age: 62 Year
  Sex: Female
  Weight: 54.43 kg

DRUGS (8)
  1. ASTELIN SPRAY [Concomitant]
  2. LUNESTA [Concomitant]
     Active Substance: ESZOPICLONE
  3. EPT BIOIDENTICAL HRT [Concomitant]
  4. DOXEPIN [Concomitant]
     Active Substance: DOXEPIN
  5. ECHINACEA [Concomitant]
     Active Substance: ECHINACEA, UNSPECIFIED
  6. ESZOPICLONE. [Suspect]
     Active Substance: ESZOPICLONE
     Indication: SLEEP DISORDER
     Dates: start: 20140801, end: 20150226
  7. CALCIUM SUPPLEMENT (WITHOUT MAGNESIUM) [Concomitant]
  8. METAMUCIL CAPS [Concomitant]

REACTIONS (10)
  - Insomnia [None]
  - Product quality issue [None]
  - Restlessness [None]
  - Product substitution issue [None]
  - Nervous system disorder [None]
  - Reaction to drug excipients [None]
  - Condition aggravated [None]
  - Panic attack [None]
  - Tremor [None]
  - Vision blurred [None]

NARRATIVE: CASE EVENT DATE: 20141127
